FAERS Safety Report 14181681 (Version 3)
Quarter: 2017Q4

REPORT INFORMATION
  Report Type: Spontaneous
  Country: US (occurrence: US)
  Receive Date: 20171113
  Receipt Date: 20171116
  Transmission Date: 20180321
  Serious: Yes (Hospitalization)
  Sender: FDA-Public Use
  Company Number: US-AMGEN-USASP2017169298

PATIENT
  Age: 90 Year
  Sex: Female

DRUGS (1)
  1. ENBREL [Suspect]
     Active Substance: ETANERCEPT
     Indication: RHEUMATOID ARTHRITIS
     Dosage: 50 MG, QWK
     Route: 058
     Dates: start: 201704

REACTIONS (11)
  - Dyspnoea [Unknown]
  - Dizziness [Unknown]
  - Poor quality sleep [Unknown]
  - Wrong technique in product usage process [Unknown]
  - Memory impairment [Unknown]
  - Injection site swelling [Unknown]
  - Contusion [Unknown]
  - Injection site pain [Unknown]
  - Cardiac disorder [Unknown]
  - Fall [Unknown]
  - Adverse event [Unknown]

NARRATIVE: CASE EVENT DATE: 2017
